FAERS Safety Report 10695481 (Version 1)
Quarter: 2014Q4

REPORT INFORMATION
  Report Type: Spontaneous
  Country: US (occurrence: None)
  Receive Date: 20141224
  Receipt Date: 20141224
  Transmission Date: 20150529
  Serious: Yes (Hospitalization)
  Sender: FDA-Public Use
  Company Number: 1713747-2014-999226

PATIENT
  Age: 74 Year
  Sex: Male
  Weight: 70 kg

DRUGS (22)
  1. LISINOPRIL. [Concomitant]
     Active Substance: LISINOPRIL
  2. LEXAPRO [Concomitant]
     Active Substance: ESCITALOPRAM OXALATE
  3. LORATADINE. [Concomitant]
     Active Substance: LORATADINE
  4. REQUIP [Concomitant]
     Active Substance: ROPINIROLE HYDROCHLORIDE
  5. LIBERTY CYCLER [Concomitant]
     Active Substance: DEVICE
  6. POTASSIUM CHLORIDE. [Concomitant]
     Active Substance: POTASSIUM CHLORIDE
  7. ZETIA [Concomitant]
     Active Substance: EZETIMIBE
  8. ASPIRIN. [Concomitant]
     Active Substance: ASPIRIN
  9. FERROUS SULFATE [Concomitant]
     Active Substance: FERROUS SULFATE\FERROUS SULFATE, DRIED
  10. HYDROCODONE [Concomitant]
     Active Substance: HYDROCODONE
  11. GENTAMYCIN [Concomitant]
     Active Substance: GENTAMICIN
  12. LEVEMIR [Concomitant]
     Active Substance: INSULIN DETEMIR
  13. ALLOPURINOL. [Concomitant]
     Active Substance: ALLOPURINOL
  14. PROMETHAZONE [Concomitant]
  15. DELFLEX [Suspect]
     Active Substance: CALCIUM CHLORIDE\DEXTROSE MONOHYDRATE\MAGNESIUM CHLORIDE\SODIUM CHLORIDE\SODIUM LACTATE
     Indication: CHRONIC KIDNEY DISEASE
     Dosage: PERITONEAL DIALYSIS
     Dates: start: 20131014
  16. BENADRYL [Concomitant]
     Active Substance: DIPHENHYDRAMINE HYDROCHLORIDE
  17. NOVOFINE [Concomitant]
     Active Substance: INSULIN NOS
  18. OMEPRAZOLE. [Concomitant]
     Active Substance: OMEPRAZOLE
  19. REVAVITE [Concomitant]
  20. LIBERTY CYCLER SET [Concomitant]
  21. DONEPEZIL [Concomitant]
     Active Substance: DONEPEZIL
  22. DICYCLOMINE [Concomitant]
     Active Substance: DICYCLOMINE HYDROCHLORIDE

REACTIONS (1)
  - Peritonitis [None]

NARRATIVE: CASE EVENT DATE: 20131014
